FAERS Safety Report 20804214 (Version 1)
Quarter: 2022Q2

REPORT INFORMATION
  Report Type: Spontaneous
  Country: DE (occurrence: DE)
  Receive Date: 20220509
  Receipt Date: 20220509
  Transmission Date: 20220721
  Serious: Yes (Death, Other)
  Sender: FDA-Public Use
  Company Number: DE-SUN PHARMACEUTICAL INDUSTRIES LTD-2022R1-333870

PATIENT
  Age: 68 Year
  Sex: Male

DRUGS (2)
  1. AZACITIDINE [Suspect]
     Active Substance: AZACITIDINE
     Indication: Blastic plasmacytoid dendritic cell neoplasia
     Dosage: UNK
     Route: 065
  2. VENETOCLAX [Suspect]
     Active Substance: VENETOCLAX
     Indication: Blastic plasmacytoid dendritic cell neoplasia
     Dosage: UNK
     Route: 065

REACTIONS (3)
  - Neutropenia [Fatal]
  - Septic shock [Fatal]
  - Disease progression [Unknown]

NARRATIVE: CASE EVENT DATE: 20210301
